FAERS Safety Report 16573192 (Version 1)
Quarter: 2019Q3

REPORT INFORMATION
  Report Type: Spontaneous
  Country: US (occurrence: US)
  Receive Date: 20190531
  Receipt Date: 20190531
  Transmission Date: 20191004
  Serious: Yes (Hospitalization)
  Sender: FDA-Public Use
  Company Number: None

PATIENT
  Age: 70 Year
  Sex: Male
  Weight: 68 kg

DRUGS (1)
  1. WARFARIN [Suspect]
     Active Substance: WARFARIN
     Indication: CEREBRAL ARTERY EMBOLISM
     Route: 048
     Dates: start: 20101021, end: 20181120

REACTIONS (9)
  - Haemoglobin decreased [None]
  - Asthenia [None]
  - Gastrointestinal haemorrhage [None]
  - Gastric haemorrhage [None]
  - Gastric ulcer [None]
  - Gastritis erosive [None]
  - Lethargy [None]
  - Prostate cancer [None]
  - Diverticulum intestinal [None]

NARRATIVE: CASE EVENT DATE: 20181120
